FAERS Safety Report 4517422-0 (Version None)
Quarter: 2004Q4

REPORT INFORMATION
  Report Type: 
  Country: None (occurrence: None)
  Receive Date: 20041022
  Receipt Date: 20040909
  Transmission Date: 20050328
  Serious: Yes (Other)
  Sender: FDA-Public Use
  Company Number: 2004047089

PATIENT
  Age: 35 Year
  Sex: Female
  Weight: 106.1417 kg

DRUGS (5)
  1. RELPAX [Suspect]
     Indication: MIGRAINE
     Dosage: 40 MG, ORAL
     Route: 048
     Dates: start: 20040707
  2. LEVOTHYROXINE SODIUM [Suspect]
     Indication: ILL-DEFINED DISORDER
     Dosage: 100 MCG
     Dates: start: 20040101
  3. METOPROLOL SUCCINATE [Concomitant]
  4. PAROXETINE HCL [Concomitant]
  5. ZOLMITRIPTAN (ZOLMITRIPTAN) [Concomitant]

REACTIONS (3)
  - DRUG INTERACTION [None]
  - FEELING ABNORMAL [None]
  - MIGRAINE [None]
